APPROVED DRUG PRODUCT: PARICALCITOL
Active Ingredient: PARICALCITOL
Strength: 4MCG
Dosage Form/Route: CAPSULE;ORAL
Application: A091412 | Product #003 | TE Code: AB
Applicant: CHARTWELL RX SCIENCES LLC
Approved: Jun 24, 2014 | RLD: No | RS: No | Type: RX